FAERS Safety Report 4652921-2 (Version None)
Quarter: 2005Q2

REPORT INFORMATION
  Report Type: 
  Country: None (occurrence: None)
  Receive Date: 20050503
  Receipt Date: 20050414
  Transmission Date: 20051028
  Serious: Yes (Congenital Anomaly)
  Sender: FDA-Public Use
  Company Number: B0378028A

PATIENT
  Sex: Male

DRUGS (2)
  1. LAMICTAL [Suspect]
     Dosage: 100 MG; PER DAY; TRANSPLACENTARY
     Route: 064
  2. VALPROATE SODIUM [Suspect]
     Dosage: TRANSPLACENTARY
     Route: 064

REACTIONS (6)
  - DEATH NEONATAL [None]
  - DRUG EXPOSURE DURING PREGNANCY [None]
  - LOWER LIMB DEFORMITY [None]
  - MENINGOMYELOCELE [None]
  - POSTMATURE BABY [None]
  - UPPER LIMB DEFORMITY [None]
